FAERS Safety Report 15765311 (Version 1)
Quarter: 2018Q4

REPORT INFORMATION
  Report Type: Spontaneous
  Country: US (occurrence: US)
  Receive Date: 20181218
  Receipt Date: 20181218
  Transmission Date: 20190205
  Serious: No
  Sender: FDA-Public Use
  Company Number: None

PATIENT

DRUGS (2)
  1. IMIPRAMINE HCL IMIPRAMINE [Suspect]
     Active Substance: IMIPRAMINE HYDROCHLORIDE
     Route: 048
  2. HYDRALAZINE HCL HYDRALAZINE [Suspect]
     Active Substance: HYDRALAZINE HYDROCHLORIDE
     Route: 048

REACTIONS (2)
  - Product label on wrong product [None]
  - Intercepted product dispensing error [None]
